FAERS Safety Report 11815757 (Version 1)
Quarter: 2015Q4

REPORT INFORMATION
  Report Type: Report from Study
  Country: JP (occurrence: JP)
  Receive Date: 20151209
  Receipt Date: 20151209
  Transmission Date: 20160305
  Serious: Yes (Hospitalization)
  Sender: FDA-Public Use
  Company Number: US-ASTRAZENECA-2015SF23496

PATIENT
  Age: 1 Year
  Sex: Male

DRUGS (19)
  1. SYNAGIS [Suspect]
     Active Substance: PALIVIZUMAB
     Indication: PULMONARY HYPERTENSION
     Dosage: 0.9 ML; INJ SITE: L ANTEROLATERAL THIGH, LRI SCORE: 0
     Route: 030
     Dates: start: 20141010, end: 20141010
  2. SYNAGIS [Suspect]
     Active Substance: PALIVIZUMAB
     Indication: TRISOMY 21
     Dosage: 0.9 ML; INJ SITE: L ANTEROLATERAL THIGH, LRI SCORE: 0
     Route: 030
     Dates: start: 20141010, end: 20141010
  3. SYNAGIS [Suspect]
     Active Substance: PALIVIZUMAB
     Indication: PULMONARY HYPERTENSION
     Dosage: 1 ML; INJ SITE: L ANTEROLATERAL THIGH, LRI SCORE: 0
     Route: 030
     Dates: start: 20141212, end: 20141212
  4. SYNAGIS [Suspect]
     Active Substance: PALIVIZUMAB
     Indication: TRISOMY 21
     Dosage: 0.8 ML; INJ SITE: L ANTEROLATERAL THIGH, LRI SCORE: 0
     Route: 030
     Dates: start: 20140912, end: 20140912
  5. SYNAGIS [Suspect]
     Active Substance: PALIVIZUMAB
     Indication: PULMONARY HYPERTENSION
     Dosage: 0.8 ML; INJ SITE: L ANTEROLATERAL THIGH, LRI SCORE: 0
     Route: 030
     Dates: start: 20140912, end: 20140912
  6. FAMOTIDINE. [Concomitant]
     Active Substance: FAMOTIDINE
     Indication: PRODUCT USED FOR UNKNOWN INDICATION
     Route: 048
     Dates: start: 20140301, end: 20141010
  7. LEVOTHYROXINE SODIUM. [Concomitant]
     Active Substance: LEVOTHYROXINE SODIUM
     Indication: PRODUCT USED FOR UNKNOWN INDICATION
     Route: 048
     Dates: start: 20140107
  8. AMBROXOL HYDROCHLORIDE [Concomitant]
     Active Substance: AMBROXOL HYDROCHLORIDE
     Indication: PRODUCT USED FOR UNKNOWN INDICATION
     Route: 048
     Dates: start: 20140407
  9. FERRIC PYROPHOSPHATE [Concomitant]
     Active Substance: FERRIC PYROPHOSPHATE
     Indication: PRODUCT USED FOR UNKNOWN INDICATION
     Dosage: SOLUBLE
     Route: 048
     Dates: start: 20140220, end: 20141010
  10. SYNAGIS [Suspect]
     Active Substance: PALIVIZUMAB
     Indication: PULMONARY HYPERTENSION
     Dosage: 0.9 ML; INJ SITE: L ANTEROLATERAL THIGH, LRI SCORE: 0
     Route: 030
     Dates: start: 20141114, end: 20141114
  11. SYNAGIS [Suspect]
     Active Substance: PALIVIZUMAB
     Indication: TRISOMY 21
     Dosage: 1 ML; INJ SITE: L ANTEROLATERAL THIGH, LRI SCORE: 0
     Route: 030
     Dates: start: 20141212, end: 20141212
  12. SYNAGIS [Suspect]
     Active Substance: PALIVIZUMAB
     Indication: TRISOMY 21
     Dosage: 1 ML; INJ SITE: L ANTEROLATERAL THIGH, LRI SCORE: 0
     Route: 030
     Dates: start: 20150316, end: 20150316
  13. SYNAGIS [Suspect]
     Active Substance: PALIVIZUMAB
     Indication: PULMONARY HYPERTENSION
     Dosage: 1 ML; INJ SITE: L ANTEROLATERAL THIGH, LRI SCORE: 0
     Route: 030
     Dates: start: 20150123, end: 20150123
  14. SYNAGIS [Suspect]
     Active Substance: PALIVIZUMAB
     Indication: PULMONARY HYPERTENSION
     Dosage: 1 ML; INJ SITE: L ANTEROLATERAL THIGH, LRI SCORE: 0
     Route: 030
     Dates: start: 20150316, end: 20150316
  15. SPIRONOLACTONE. [Concomitant]
     Active Substance: SPIRONOLACTONE
     Indication: PRODUCT USED FOR UNKNOWN INDICATION
     Route: 048
     Dates: start: 20140109
  16. SYNAGIS [Suspect]
     Active Substance: PALIVIZUMAB
     Indication: TRISOMY 21
     Dosage: 0.9 ML; INJ SITE: L ANTEROLATERAL THIGH, LRI SCORE: 0
     Route: 030
     Dates: start: 20141114, end: 20141114
  17. SYNAGIS [Suspect]
     Active Substance: PALIVIZUMAB
     Indication: TRISOMY 21
     Dosage: 1 ML; INJ SITE: L ANTEROLATERAL THIGH, LRI SCORE: 0
     Route: 030
     Dates: start: 20150123, end: 20150123
  18. FUROSEMIDE. [Concomitant]
     Active Substance: FUROSEMIDE
     Indication: PRODUCT USED FOR UNKNOWN INDICATION
     Route: 048
     Dates: start: 20140109
  19. CARBOCISTEINE [Concomitant]
     Active Substance: CARBOCYSTEINE
     Indication: PRODUCT USED FOR UNKNOWN INDICATION
     Route: 048
     Dates: start: 20140407

REACTIONS (2)
  - Pneumonia [Recovering/Resolving]
  - Respiratory syncytial virus infection [Recovering/Resolving]

NARRATIVE: CASE EVENT DATE: 20150104
